FAERS Safety Report 16823375 (Version 2)
Quarter: 2019Q3

REPORT INFORMATION
  Report Type: Report from Study
  Country: IL (occurrence: IL)
  Receive Date: 20190918
  Receipt Date: 20190920
  Transmission Date: 20191005
  Serious: Yes (Other)
  Sender: FDA-Public Use
  Company Number: PHHY2019IL212525

PATIENT
  Sex: Female
  Weight: 79 kg

DRUGS (3)
  1. TRAMETINIB [Suspect]
     Active Substance: TRAMETINIB
     Indication: GLIOMA
     Dosage: 0.5 MG, UNK
     Route: 048
     Dates: start: 20190529
  2. TRAMETINIB [Suspect]
     Active Substance: TRAMETINIB
     Dosage: 0.5 MG, UNK
     Route: 048
     Dates: start: 20190707, end: 20190725
  3. TRAMETINIB [Suspect]
     Active Substance: TRAMETINIB
     Dosage: 2 MG, BIW
     Route: 048
     Dates: start: 20190815

REACTIONS (2)
  - Cyst [Recovered/Resolved]
  - MEK inhibitor-associated serous retinopathy [Recovering/Resolving]
